FAERS Safety Report 19676081 (Version 1)
Quarter: 2021Q3

REPORT INFORMATION
  Report Type: Report from Study
  Country: AR (occurrence: AR)
  Receive Date: 20210809
  Receipt Date: 20210809
  Transmission Date: 20211014
  Serious: Yes (Life-Threatening, Hospitalization, Other)
  Sender: FDA-Public Use
  Company Number: PHHY2015AR167869

PATIENT
  Sex: Female

DRUGS (2)
  1. EXJADE [Suspect]
     Active Substance: DEFERASIROX
     Indication: ANAEMIA
     Dosage: UNK
     Route: 065
     Dates: start: 2009, end: 20151214
  2. EXJADE [Suspect]
     Active Substance: DEFERASIROX
     Dosage: 500 MG, QD (STOPPED 02 YEARS AGO APPROXIMATELY)
     Route: 065
     Dates: start: 2015

REACTIONS (16)
  - Pruritus [Recovering/Resolving]
  - Diarrhoea [Recovering/Resolving]
  - Dehydration [Unknown]
  - Food refusal [Unknown]
  - Vomiting [Unknown]
  - Discomfort [Unknown]
  - Headache [Recovering/Resolving]
  - Nausea [Unknown]
  - Coeliac disease [Unknown]
  - General physical health deterioration [Unknown]
  - Malaise [Not Recovered/Not Resolved]
  - Food intolerance [Unknown]
  - Peripheral swelling [Recovering/Resolving]
  - Depression [Unknown]
  - Abdominal pain [Recovering/Resolving]
  - Alopecia [Not Recovered/Not Resolved]

NARRATIVE: CASE EVENT DATE: 2015
